FAERS Safety Report 12536021 (Version 1)
Quarter: 2016Q3

REPORT INFORMATION
  Report Type: Spontaneous
  Country: US (occurrence: None)
  Receive Date: 20160706
  Receipt Date: 20160706
  Transmission Date: 20161109
  Serious: Yes (Other)
  Sender: FDA-Public Use
  Company Number: None

PATIENT
  Age: 42 Year
  Sex: Female
  Weight: 68.04 kg

DRUGS (3)
  1. ARMOUR THYROID [Concomitant]
     Active Substance: THYROID, PORCINE
  2. MULTIVITAMIN [Concomitant]
     Active Substance: VITAMINS
  3. HYDROCODON-ACETAMINOPHEN 10-325 (WHITE OBLONG PILL IMPRINTED P110) AMNEAL PHARMACE [Suspect]
     Active Substance: ACETAMINOPHEN\HYDROCODONE
     Indication: BACK PAIN
     Dosage: 10-325 1 PILL 2 TIMES DAILY  MORNING/NIGHT MOUTH
     Route: 048
     Dates: start: 20160426, end: 20160626

REACTIONS (6)
  - Fear [None]
  - Vomiting [None]
  - Dizziness [None]
  - Hypopnoea [None]
  - Therapy non-responder [None]
  - Product quality issue [None]

NARRATIVE: CASE EVENT DATE: 20160424
